FAERS Safety Report 8610357-3 (Version None)
Quarter: 2012Q3

REPORT INFORMATION
  Report Type: 
  Country: None (occurrence: None)
  Receive Date: 20120822
  Receipt Date: 20120815
  Transmission Date: 20120928
  Serious: Yes (Other)
  Sender: FDA-Public Use
  Company Number: PHHY2012BR071543

PATIENT
  Sex: Male

DRUGS (1)
  1. TRILEPTAL [Suspect]
     Dosage: UNK

REACTIONS (1)
  - CEREBROVASCULAR ACCIDENT [None]
